FAERS Safety Report 9258953 (Version 1)
Quarter: 2013Q2

REPORT INFORMATION
  Report Type: Spontaneous
  Country: US (occurrence: US)
  Receive Date: 20130426
  Receipt Date: 20130426
  Transmission Date: 20140414
  Serious: Yes (Hospitalization)
  Sender: FDA-Public Use
  Company Number: US-BAYER-2013-051710

PATIENT
  Age: 40 Year
  Sex: Female

DRUGS (7)
  1. YAZ [Suspect]
  2. YASMIN [Suspect]
  3. PROPOXYPHENE NAPSYLATE W/ACETAMINOPHENE [Concomitant]
     Dosage: 100/650 MG, UNK
  4. IMITREX [Concomitant]
     Dosage: 50 MG, UNK
  5. NAPROXEN [Concomitant]
     Dosage: 550 MG, UNK
  6. SKELAXIN [Concomitant]
     Dosage: 800 MG, UNK
  7. NORTRIPTYLINE [Concomitant]
     Dosage: 50 MG, UNK

REACTIONS (1)
  - Cerebrovascular accident [None]
